FAERS Safety Report 4269947-3 (Version None)
Quarter: 2004Q1

REPORT INFORMATION
  Report Type: 
  Country: None (occurrence: None)
  Receive Date: 20040114
  Receipt Date: 20040106
  Transmission Date: 20041129
  Serious: Yes (Hospitalization)
  Sender: FDA-Public Use
  Company Number: PHEH2004US00612

PATIENT
  Sex: Female

DRUGS (4)
  1. LOTREL [Suspect]
     Indication: HYPERTENSION
     Dosage: 5 MG AMLOD/20 MG BENAZ
     Dates: start: 20030613
  2. LOTREL [Suspect]
     Dosage: 10/20 MG
     Dates: start: 20031215
  3. NIASPAN [Concomitant]
     Dosage: 500 MG, QHS
  4. ASPIRIN [Concomitant]

REACTIONS (6)
  - BRAIN NATRIURETIC PEPTIDE INCREASED [None]
  - CARDIAC FAILURE CONGESTIVE [None]
  - DILATATION VENTRICULAR [None]
  - PROTEINURIA [None]
  - RENAL FAILURE [None]
  - SCAN MYOCARDIAL PERFUSION ABNORMAL [None]
